FAERS Safety Report 9170265 (Version 1)
Quarter: 2013Q1

REPORT INFORMATION
  Report Type: Spontaneous
  Country: US (occurrence: US)
  Receive Date: 20130319
  Receipt Date: 20130319
  Transmission Date: 20140127
  Serious: No
  Sender: FDA-Public Use
  Company Number: US-ROXANE LABORATORIES, INC.-2013-RO-00384RO

PATIENT
  Sex: Female

DRUGS (5)
  1. PREDNISONE [Suspect]
  2. AVONEX [Suspect]
  3. CABASER [Suspect]
  4. REBIF [Suspect]
  5. SOLU MEDROL [Suspect]

REACTIONS (1)
  - Tooth disorder [Unknown]
